FAERS Safety Report 9925625 (Version 1)
Quarter: 2014Q1

REPORT INFORMATION
  Report Type: Spontaneous
  Country: US (occurrence: None)
  Receive Date: 20140221
  Receipt Date: 20140221
  Transmission Date: 20141002
  Serious: Yes (Hospitalization)
  Sender: FDA-Public Use
  Company Number: SYM-2014-17625

PATIENT
  Sex: Male

DRUGS (1)
  1. XENAZINE (25 MILLIGRAM, TABLET) (TETRABENAZINE, TETRABENAZINE)? [Suspect]
     Indication: PRODUCT USED FOR UNKNOWN INDICATION
     Route: 048
     Dates: start: 20131218

REACTIONS (1)
  - Hospitalisation [None]
